FAERS Safety Report 17525816 (Version 1)
Quarter: 2020Q1

REPORT INFORMATION
  Report Type: Spontaneous
  Country: US (occurrence: US)
  Receive Date: 20200310
  Receipt Date: 20200310
  Transmission Date: 20200409
  Serious: No
  Sender: FDA-Public Use
  Company Number: US-BAUSCH-BL-2020-004767

PATIENT
  Age: 29 Year
  Sex: Female
  Weight: 65.83 kg

DRUGS (2)
  1. LUMIFY [Suspect]
     Active Substance: BRIMONIDINE TARTRATE
     Indication: OCULAR HYPERAEMIA
     Dosage: STARTED ABOUT A YEAR AGO (1 DROP IN EACH EYE ONCE A DAY AS NEEDED, ONLY ON SPECIAL OCCASIONS)
     Route: 047
     Dates: start: 2019
  2. RESTASIS [Concomitant]
     Active Substance: CYCLOSPORINE
     Indication: PRODUCT USED FOR UNKNOWN INDICATION

REACTIONS (4)
  - Expired product administered [Unknown]
  - Inappropriate schedule of product administration [Unknown]
  - Eye irritation [Unknown]
  - Eye pain [Unknown]

NARRATIVE: CASE EVENT DATE: 2019
